FAERS Safety Report 24922592 (Version 1)
Quarter: 2025Q1

REPORT INFORMATION
  Report Type: Spontaneous
  Country: US (occurrence: None)
  Receive Date: 20250204
  Receipt Date: 20250204
  Transmission Date: 20250408
  Serious: Yes (Disabling)
  Sender: FDA-CTU
  Company Number: None

PATIENT
  Age: 45 Year
  Sex: Male
  Weight: 76.5 kg

DRUGS (1)
  1. FINASTERIDE [Suspect]
     Active Substance: FINASTERIDE
     Indication: Alopecia
     Dosage: FREQUENCY : AT BEDTIME;?
     Route: 061
     Dates: start: 20231021, end: 20241029

REACTIONS (12)
  - Anxiety [None]
  - Depression [None]
  - Tremor [None]
  - Sleep apnoea syndrome [None]
  - Tinnitus [None]
  - Headache [None]
  - Suicide attempt [None]
  - Sexual dysfunction [None]
  - Panic attack [None]
  - Muscle twitching [None]
  - Muscle twitching [None]
  - Hyperacusis [None]

NARRATIVE: CASE EVENT DATE: 20241029
